FAERS Safety Report 23130284 (Version 1)
Quarter: 2023Q4

REPORT INFORMATION
  Report Type: Other
  Country: RO (occurrence: RO)
  Receive Date: 20231031
  Receipt Date: 20231031
  Transmission Date: 20240110
  Serious: Yes (Hospitalization, Other)
  Sender: FDA-Public Use
  Company Number: RO-Merck Healthcare KGaA-2023484449

PATIENT
  Age: 57 Year
  Sex: Male

DRUGS (1)
  1. LEVOTHYROXINE SODIUM [Suspect]
     Active Substance: LEVOTHYROXINE SODIUM
     Indication: Hypothyroidism

REACTIONS (3)
  - Graves^ disease [Recovering/Resolving]
  - Endocrine ophthalmopathy [Recovering/Resolving]
  - Insulin-like growth factor increased [Recovering/Resolving]
